FAERS Safety Report 4320468-9 (Version None)
Quarter: 2004Q1

REPORT INFORMATION
  Report Type: 
  Country: None (occurrence: None)
  Receive Date: 20040319
  Receipt Date: 20040319
  Transmission Date: 20041129
  Serious: Yes (Other)
  Sender: FDA-Public Use
  Company Number: None

PATIENT
  Age: 30 Year
  Sex: Female

DRUGS (1)
  1. BUPIVACAINE HCL 0.75% IN 8.25% DEXTROSE ABBOTT [Suspect]
     Indication: NORMAL LABOUR
     Dosage: 2 ML AMPULE ONCE EPIDURAL
     Route: 008

REACTIONS (1)
  - DRUG INEFFECTIVE [None]
